FAERS Safety Report 8473842-3 (Version None)
Quarter: 2012Q2

REPORT INFORMATION
  Report Type: 
  Country: None (occurrence: None)
  Receive Date: 20120628
  Receipt Date: 20120529
  Transmission Date: 20120825
  Serious: Yes (Other)
  Sender: FDA-Public Use
  Company Number: US-MYLANLABS-2011S1026031

PATIENT
  Age: 43 Year
  Sex: Female
  Weight: 91.63 kg

DRUGS (5)
  1. CLOZAPINE [Suspect]
     Indication: SCHIZOPHRENIA
     Route: 048
     Dates: end: 20120201
  2. HALDOL [Concomitant]
     Dosage: 10MG QAM AND 15MG HS
     Route: 048
     Dates: start: 20111101
  3. DEPAKOTE ER [Concomitant]
     Route: 048
  4. CLOZAPINE [Suspect]
     Route: 048
     Dates: end: 20120201
  5. TOPAMAX [Concomitant]
     Route: 048

REACTIONS (2)
  - GRANULOCYTOPENIA [None]
  - LEUKOPENIA [None]
